FAERS Safety Report 26118218 (Version 1)
Quarter: 2025Q4

REPORT INFORMATION
  Report Type: Spontaneous
  Country: CN (occurrence: CN)
  Receive Date: 20251203
  Receipt Date: 20251203
  Transmission Date: 20260117
  Serious: Yes (Disabling, Other)
  Sender: MERCK SHARP & DOHME LLC
  Company Number: CN-009507513-2356904

PATIENT
  Age: 48 Year
  Sex: Female
  Weight: 46 kg

DRUGS (4)
  1. SACITUZUMAB TIRUMOTECAN [Suspect]
     Active Substance: SACITUZUMAB TIRUMOTECAN
     Indication: Breast cancer
     Dosage: STRENGTH: 200 MG/VIAL
     Route: 041
     Dates: start: 20251031, end: 20251031
  2. LENVATINIB [Suspect]
     Active Substance: LENVATINIB
     Indication: Breast cancer
     Route: 048
     Dates: start: 20251031, end: 20251116
  3. TORIPALIMAB [Suspect]
     Active Substance: TORIPALIMAB
     Indication: Breast cancer
     Route: 041
     Dates: start: 20251031, end: 20251031
  4. Sodium chloride injection (0.9%) [Concomitant]
     Indication: Medication dilution
     Route: 041
     Dates: start: 20251031, end: 20251031

REACTIONS (1)
  - Myelosuppression [Recovering/Resolving]

NARRATIVE: CASE EVENT DATE: 20251116
